FAERS Safety Report 19575892 (Version 4)
Quarter: 2022Q4

REPORT INFORMATION
  Report Type: Report from Study
  Country: KR (occurrence: KR)
  Receive Date: 20210719
  Receipt Date: 20221206
  Transmission Date: 20230113
  Serious: Yes (Life-Threatening)
  Sender: FDA-Public Use
  Company Number: KR-TAKEDA-2021TJP059045

PATIENT

DRUGS (45)
  1. NIRAPARIB [Suspect]
     Active Substance: NIRAPARIB
     Indication: Ovarian cancer recurrent
     Dosage: 200 MILLIGRAM, QD
     Route: 048
     Dates: start: 20210410, end: 20210506
  2. NIRAPARIB [Suspect]
     Active Substance: NIRAPARIB
     Indication: Fallopian tube cancer
     Dosage: 100 MILLIGRAM, QD
     Route: 048
     Dates: start: 20210511, end: 20210617
  3. NIRAPARIB [Suspect]
     Active Substance: NIRAPARIB
     Indication: Malignant peritoneal neoplasm
     Dosage: 100 MILLIGRAM, QD
     Route: 048
     Dates: start: 20210629, end: 20211125
  4. ASPIRIN [Concomitant]
     Active Substance: ASPIRIN
     Indication: Prophylaxis
     Dosage: 1 TAB, QD
     Route: 048
     Dates: start: 2006, end: 20210611
  5. ASPIRIN [Concomitant]
     Active Substance: ASPIRIN
     Dosage: 1 TAB, QD
     Route: 048
     Dates: start: 20210626
  6. EZETIMIBE [Concomitant]
     Active Substance: EZETIMIBE
     Indication: Hyperlipidaemia
     Dosage: 1 TAB, QD
     Route: 048
     Dates: start: 2006, end: 20210619
  7. EZETIMIBE [Concomitant]
     Active Substance: EZETIMIBE
     Dosage: 1 TAB, QD
     Route: 048
     Dates: start: 20210629, end: 20210819
  8. ROSUVASTATIN [Concomitant]
     Active Substance: ROSUVASTATIN
     Indication: Hyperlipidaemia
     Dosage: 1 TAB, QD
     Route: 048
     Dates: start: 2006, end: 20210619
  9. ROSUVASTATIN [Concomitant]
     Active Substance: ROSUVASTATIN
     Dosage: 1 TAB, QD
     Route: 048
     Dates: start: 20210623
  10. LEVAMLODIPINE [Concomitant]
     Active Substance: LEVAMLODIPINE
     Indication: Hypertension
     Dosage: UNK UNK, QD
     Route: 048
     Dates: start: 2006
  11. OLMESARTAN MEDOXOMIL [Concomitant]
     Active Substance: OLMESARTAN MEDOXOMIL
     Indication: Hypertension
     Dosage: 1 TAB, QD
     Route: 048
     Dates: start: 2006, end: 20210619
  12. GABAPENTIN [Concomitant]
     Active Substance: GABAPENTIN
     Indication: Peripheral sensory neuropathy
     Dosage: 1 CAP, TID
     Route: 048
     Dates: start: 20210325, end: 20210422
  13. GABAPENTIN [Concomitant]
     Active Substance: GABAPENTIN
     Dosage: 1 CAP, TID
     Route: 048
     Dates: start: 20210626, end: 20210709
  14. LEVOTHYROXINE [Concomitant]
     Active Substance: LEVOTHYROXINE
     Indication: Hypothyroidism
     Dosage: 50 MICROGRAM, TID
     Route: 048
     Dates: start: 200704
  15. METFORMIN [Concomitant]
     Active Substance: METFORMIN HYDROCHLORIDE
     Indication: Diabetes mellitus
     Dosage: 500 MILLIGRAM, BID
     Route: 048
     Dates: start: 20210319, end: 20210619
  16. METFORMIN [Concomitant]
     Active Substance: METFORMIN HYDROCHLORIDE
     Dosage: 500 MILLIGRAM, BID
     Route: 048
     Dates: start: 20210624
  17. DULOXETINE [Concomitant]
     Active Substance: DULOXETINE
     Indication: Peripheral sensory neuropathy
     Dosage: 30 MILLIGRAM, QD
     Route: 048
     Dates: start: 20210325, end: 20210422
  18. FAMOTIDINE [Concomitant]
     Active Substance: FAMOTIDINE
     Indication: Prophylaxis
     Dosage: 20 MILLIGRAM, BID
     Route: 048
     Dates: start: 20210325, end: 20210422
  19. FAMOTIDINE [Concomitant]
     Active Substance: FAMOTIDINE
     Dosage: 20 MILLIGRAM, BID
     Route: 042
     Dates: start: 20210621, end: 20210622
  20. FAMOTIDINE [Concomitant]
     Active Substance: FAMOTIDINE
     Dosage: 20 MILLIGRAM, BID
     Route: 048
     Dates: start: 20210723, end: 20210820
  21. URSODIOL [Concomitant]
     Active Substance: URSODIOL
     Indication: Aspartate aminotransferase increased
     Dosage: 100 MILLIGRAM, TID
     Route: 048
     Dates: start: 20210407
  22. DIETARY SUPPLEMENT\HERBALS\MILK THISTLE [Concomitant]
     Active Substance: DIETARY SUPPLEMENT\HERBALS\MILK THISTLE
     Indication: Aspartate aminotransferase increased
     Dosage: 140 MILLIGRAM, BID
     Route: 048
     Dates: start: 20210407
  23. LOPERAMIDE [Concomitant]
     Active Substance: LOPERAMIDE
     Indication: Diarrhoea
     Dosage: 4 MILLIGRAM, BID
     Route: 048
     Dates: start: 20210407, end: 20210415
  24. LOPERAMIDE [Concomitant]
     Active Substance: LOPERAMIDE
     Dosage: 6 MILLIGRAM, BID
     Route: 048
     Dates: start: 20210416, end: 20210608
  25. METOCLOPRAMIDE [Concomitant]
     Active Substance: METOCLOPRAMIDE
     Indication: Vomiting
     Dosage: 5 MILLIGRAM, TID
     Route: 048
     Dates: start: 20210416, end: 20210421
  26. LAFUTIDINE [Concomitant]
     Active Substance: LAFUTIDINE
     Indication: Vomiting
     Dosage: 10 MILLIGRAM, TID
     Route: 048
     Dates: start: 20210416, end: 20210421
  27. MEGESTROL ACETATE [Concomitant]
     Active Substance: MEGESTROL ACETATE
     Indication: Decreased appetite
     Dosage: 625 MILLIGRAM, QD
     Route: 048
     Dates: start: 20210422, end: 20210430
  28. MEGESTROL ACETATE [Concomitant]
     Active Substance: MEGESTROL ACETATE
     Dosage: 625 MILLIGRAM, QD
     Route: 048
     Dates: start: 20210510, end: 20210608
  29. MEGESTROL ACETATE [Concomitant]
     Active Substance: MEGESTROL ACETATE
     Dosage: 625 MILLIGRAM, QD
     Route: 048
     Dates: start: 20210723, end: 20210820
  30. FILGRASTIM [Concomitant]
     Active Substance: FILGRASTIM
     Indication: Neutrophil count decreased
     Dosage: 300 MICROGRAM, QD
     Route: 058
     Dates: start: 20210508, end: 20210509
  31. SMOFLIPID [Concomitant]
     Active Substance: FISH OIL\MEDIUM-CHAIN TRIGLYCERIDES\OLIVE OIL\SOYBEAN OIL
     Indication: Prophylaxis
     Dosage: 250 MILLILITER, QD
     Route: 042
     Dates: start: 20210510, end: 20210510
  32. MAGNESIUM SULFATE [Concomitant]
     Active Substance: MAGNESIUM SULFATE
     Indication: Hypomagnesaemia
     Dosage: 2 GRAM, QD
     Route: 042
     Dates: start: 20210510, end: 20210510
  33. CEFOTETAN [Concomitant]
     Active Substance: CEFOTETAN DISODIUM
     Indication: Prophylaxis
     Dosage: 20 MILLIGRAM, BID
     Route: 042
     Dates: start: 20210621, end: 20210621
  34. NEFOPAMI HYDROCHLORIDUM [Concomitant]
     Indication: Procedural pain
     Dosage: 20 MG, QD
     Route: 042
     Dates: start: 20210621, end: 20210622
  35. FENTANYL [Concomitant]
     Active Substance: FENTANYL
     Indication: Procedural pain
     Dosage: 25 MICROGRAM, QD
     Route: 042
     Dates: start: 20210621, end: 20210621
  36. NICARDIPINE [Concomitant]
     Active Substance: NICARDIPINE
     Indication: Hypertension
     Dosage: 5 MILLIGRAM, QD
     Route: 042
     Dates: start: 20210621, end: 20210621
  37. AMBROXOL [Concomitant]
     Active Substance: AMBROXOL
     Indication: Prophylaxis
     Dosage: 15 MILLIGRAM, QID
     Route: 042
     Dates: start: 20210622, end: 20210622
  38. OMAPRIN [Concomitant]
     Indication: Prophylaxis
     Dosage: 952 MILLILITER, QD
     Route: 042
     Dates: start: 20210623, end: 20210623
  39. RAMOSETRON HYDROCHLORIDE [Concomitant]
     Active Substance: RAMOSETRON HYDROCHLORIDE
     Indication: Prophylaxis
     Dosage: 0.3 MILLIGRAM, QD
     Route: 042
     Dates: start: 20210621, end: 20210622
  40. POTASSIUM CHLORIDE [Concomitant]
     Active Substance: POTASSIUM CHLORIDE
     Indication: Hypokalaemia
     Dosage: 500 MILLIGRAM, QD
     Route: 048
     Dates: start: 20210623, end: 20210623
  41. TRAMAROL SEMI ER [Concomitant]
     Indication: Abdominal distension
     Dosage: 1 TAB, BID
     Route: 048
     Dates: start: 20210624, end: 20210703
  42. URSODIOL [Concomitant]
     Active Substance: URSODIOL
     Indication: Aspartate aminotransferase increased
     Dosage: 100 MILLIGRAM, TID
     Route: 048
     Dates: start: 20210723, end: 20210917
  43. CREZET [Concomitant]
     Indication: Hyperlipidaemia
     Dosage: 1 TAB, TID
     Route: 048
     Dates: start: 20210820
  44. DICAMAX [Concomitant]
     Indication: Prophylaxis
     Dosage: 250 MILLIGRAM, QD
     Route: 048
     Dates: start: 20210820
  45. OLMESARTAN MEDOXOMIL [Concomitant]
     Active Substance: OLMESARTAN MEDOXOMIL
     Indication: Hypertension
     Dosage: 1 TAB, QD
     Route: 048
     Dates: start: 20210623

REACTIONS (1)
  - Platelet count decreased [Recovered/Resolved]
